FAERS Safety Report 11987814 (Version 3)
Quarter: 2016Q4

REPORT INFORMATION
  Report Type: Spontaneous
  Country: US (occurrence: US)
  Receive Date: 20160202
  Receipt Date: 20161121
  Transmission Date: 20170206
  Serious: No
  Sender: FDA-Public Use
  Company Number: US-JNJFOC-20150616245

PATIENT
  Sex: Male

DRUGS (8)
  1. IMBRUVICA [Suspect]
     Active Substance: IBRUTINIB
     Indication: WALDENSTROM^S MACROGLOBULINAEMIA
     Route: 048
     Dates: start: 20150327
  2. KRILL OIL [Concomitant]
     Active Substance: DIETARY SUPPLEMENT
  3. FERROUS SULFATE. [Concomitant]
     Active Substance: FERROUS SULFATE
  4. ASPIRIN. [Concomitant]
     Active Substance: ASPIRIN
  5. ATIVAN [Concomitant]
     Active Substance: LORAZEPAM
  6. FLONASE [Concomitant]
     Active Substance: FLUTICASONE PROPIONATE
  7. ALEVE PM [Concomitant]
     Active Substance: DIPHENHYDRAMINE HYDROCHLORIDE\NAPROXEN SODIUM
  8. VITAMIN D [Concomitant]
     Active Substance: CHOLECALCIFEROL

REACTIONS (9)
  - Peripheral swelling [Not Recovered/Not Resolved]
  - Vision blurred [Not Recovered/Not Resolved]
  - Fatigue [Unknown]
  - Pruritus [Not Recovered/Not Resolved]
  - Rash [Unknown]
  - Quality of life decreased [Unknown]
  - Bronchitis [Unknown]
  - Otitis externa [Not Recovered/Not Resolved]
  - Visual acuity reduced [Not Recovered/Not Resolved]

NARRATIVE: CASE EVENT DATE: 2015
